FAERS Safety Report 22163731 (Version 1)
Quarter: 2023Q2

REPORT INFORMATION
  Report Type: Spontaneous
  Country: US (occurrence: US)
  Receive Date: 20230401
  Receipt Date: 20230401
  Transmission Date: 20230721
  Serious: No
  Sender: FDA-Public Use
  Company Number: US-THEA-2022002251

PATIENT
  Sex: Male

DRUGS (1)
  1. COSOPT PF [Suspect]
     Active Substance: DORZOLAMIDE HYDROCHLORIDE\TIMOLOL MALEATE
     Indication: Product used for unknown indication
     Dosage: RIGHT EYE
     Route: 047

REACTIONS (4)
  - Erythema of eyelid [Unknown]
  - Swelling of eyelid [Unknown]
  - Eye pain [Unknown]
  - Expired product administered [Unknown]
